FAERS Safety Report 24921634 (Version 1)
Quarter: 2025Q1

REPORT INFORMATION
  Report Type: Spontaneous
  Country: US (occurrence: None)
  Receive Date: 20250203
  Receipt Date: 20250203
  Transmission Date: 20250408
  Serious: Yes (Death)
  Sender: FDA-CTU
  Company Number: None

PATIENT
  Age: 84 Year
  Sex: Male
  Weight: 81.19 kg

DRUGS (12)
  1. UDENYCA [Suspect]
     Active Substance: PEGFILGRASTIM-CBQV
     Indication: Neutropenia
     Route: 058
     Dates: start: 20240820
  2. UDENYCA [Suspect]
     Active Substance: PEGFILGRASTIM-CBQV
     Indication: Prophylaxis
  3. Aspirin 81 mg EC low dose [Concomitant]
  4. ELIQUIS [Concomitant]
     Active Substance: APIXABAN
  5. Freestyle Lite Blood Glucose System [Concomitant]
  6. ATORVASTATIN CALCIUM [Concomitant]
     Active Substance: ATORVASTATIN CALCIUM
  7. FINASTERIDE [Concomitant]
     Active Substance: FINASTERIDE
  8. LOSARTAN POTASSIUM [Concomitant]
     Active Substance: LOSARTAN POTASSIUM
  9. Metoprolol ER Succinate 25mg [Concomitant]
  10. Synthroid 0.088mg tablets [Concomitant]
  11. Glucosamine Chondroitin MSM tablets [Concomitant]
  12. Vitamin D 1000 unit Capsules [Concomitant]

REACTIONS (1)
  - Death [None]

NARRATIVE: CASE EVENT DATE: 20250130
